FAERS Safety Report 21402864 (Version 2)
Quarter: 2022Q4

REPORT INFORMATION
  Report Type: Spontaneous
  Country: JP (occurrence: JP)
  Receive Date: 20221003
  Receipt Date: 20221012
  Transmission Date: 20230113
  Serious: Yes (Death, Hospitalization, Other)
  Sender: FDA-Public Use
  Company Number: JP-BAYER-2022A126346

PATIENT
  Age: 60 Year
  Sex: Male
  Weight: 70 kg

DRUGS (1)
  1. STIVARGA [Suspect]
     Active Substance: REGORAFENIB
     Indication: Colon cancer
     Dosage: 120 MG TO 900 MG
     Route: 048
     Dates: start: 20220708, end: 20220825

REACTIONS (7)
  - Colon cancer [Fatal]
  - Drug-induced liver injury [Recovering/Resolving]
  - Metastases to lymph nodes [None]
  - Asthenia [Recovering/Resolving]
  - Fatigue [Recovering/Resolving]
  - Jaundice [Recovering/Resolving]
  - Off label use [None]

NARRATIVE: CASE EVENT DATE: 20220825
